FAERS Safety Report 6006149-4 (Version None)
Quarter: 2008Q4

REPORT INFORMATION
  Report Type: 
  Country: None (occurrence: None)
  Receive Date: 20081217
  Receipt Date: 20081021
  Transmission Date: 20090506
  Serious: No
  Sender: FDA-Public Use
  Company Number: US-BAUSCH-2008BL004500

PATIENT
  Sex: Female

DRUGS (2)
  1. ZYLET [Suspect]
     Indication: CONJUNCTIVITIS
     Route: 047
     Dates: start: 20081020, end: 20081020
  2. ALEVE-D SINUS + COLD [Concomitant]

REACTIONS (1)
  - HYPERSENSITIVITY [None]
